FAERS Safety Report 21364045 (Version 2)
Quarter: 2022Q3

REPORT INFORMATION
  Report Type: Spontaneous
  Country: US (occurrence: US)
  Receive Date: 20220922
  Receipt Date: 20220927
  Transmission Date: 20221027
  Serious: No
  Sender: FDA-Public Use
  Company Number: US-AMGEN-USASP2022163795

PATIENT
  Age: 72 Year
  Sex: Female

DRUGS (2)
  1. EVENITY [Suspect]
     Active Substance: ROMOSOZUMAB-AQQG
     Indication: Osteoporosis prophylaxis
     Dosage: 210 MILLIGRAM, QMO
     Route: 058
     Dates: start: 20220908
  2. EVENITY [Suspect]
     Active Substance: ROMOSOZUMAB-AQQG
     Indication: Off label use

REACTIONS (2)
  - Off label use [Unknown]
  - Injection site mass [Recovering/Resolving]

NARRATIVE: CASE EVENT DATE: 20220908
